FAERS Safety Report 5883276-3 (Version None)
Quarter: 2008Q3

REPORT INFORMATION
  Report Type: 
  Country: None (occurrence: None)
  Receive Date: 20080910
  Receipt Date: 20080829
  Transmission Date: 20090109
  Serious: Yes (Other)
  Sender: FDA-Public Use
  Company Number: 20126

PATIENT
  Age: 55 Year
  Sex: Female
  Weight: 61 kg

DRUGS (4)
  1. PACLITAXEL [Suspect]
     Indication: BREAST CANCER METASTATIC
     Dosage: 215 MG MONTHLY IV
     Route: 042
     Dates: start: 20080625
  2. METOCLOPRAMIDE [Concomitant]
  3. DEXAMETHASONE SODIUM [Concomitant]
  4. RANITIDINE [Concomitant]

REACTIONS (5)
  - DYSPNOEA [None]
  - ERYTHEMA [None]
  - FEELING HOT [None]
  - HYPERTENSIVE CRISIS [None]
  - TREMOR [None]
